FAERS Safety Report 5293928-4 (Version None)
Quarter: 2007Q2

REPORT INFORMATION
  Report Type: 
  Country: None (occurrence: None)
  Receive Date: 20070411
  Receipt Date: 20070404
  Transmission Date: 20071010
  Serious: Yes (Hospitalization)
  Sender: FDA-Public Use
  Company Number: US-PFIZER INC-2007027492

PATIENT
  Age: 59 Year
  Sex: Male

DRUGS (11)
  1. CHANTIX [Suspect]
  2. ALBUTEROL [Concomitant]
  3. WARFARIN SODIUM [Concomitant]
  4. FORADIL [Concomitant]
  5. LEXAPRO [Concomitant]
  6. METHADONE HCL [Concomitant]
  7. METOPROLOL SUCCINATE [Concomitant]
  8. NEXIUM [Concomitant]
  9. PULMICORT [Concomitant]
  10. VALIUM [Concomitant]
  11. WELLBUTRIN SR [Concomitant]

REACTIONS (1)
  - MICROLITHIASIS [None]
